FAERS Safety Report 6057680-7 (Version None)
Quarter: 2009Q1

REPORT INFORMATION
  Report Type: 
  Country: None (occurrence: None)
  Receive Date: 20090129
  Receipt Date: 20090121
  Transmission Date: 20090719
  Serious: Yes (Death)
  Sender: FDA-Public Use
  Company Number: US-BAYER-200814347BCC

PATIENT
  Age: 77 Year
  Sex: Female

DRUGS (2)
  1. ALKA SELTZER PLUS EFFERVESCENT (FORMULATION NOT SPECIFIED) [Suspect]
     Indication: NASOPHARYNGITIS
  2. HIGH BLOOD PRESSURE [Concomitant]

REACTIONS (1)
  - MYOCARDIAL INFARCTION [None]
